FAERS Safety Report 16306909 (Version 4)
Quarter: 2020Q2

REPORT INFORMATION
  Report Type: Report from Study
  Country: CA (occurrence: CA)
  Receive Date: 20190513
  Receipt Date: 20200406
  Transmission Date: 20200713
  Serious: Yes (Hospitalization)
  Sender: FDA-Public Use
  Company Number: CA-ACTELION-A-NJ2019-190056

PATIENT
  Age: 40 Year
  Sex: Male

DRUGS (6)
  1. CARIPUL [Suspect]
     Active Substance: EPOPROSTENOL
     Dosage: 3.2 MG, QD
     Route: 042
  2. POTASSIUM [Concomitant]
     Active Substance: POTASSIUM
  3. TRACLEER [Concomitant]
     Active Substance: BOSENTAN
     Dosage: UNK
  4. VIAGRA [Concomitant]
     Active Substance: SILDENAFIL CITRATE
  5. CARIPUL [Suspect]
     Active Substance: EPOPROSTENOL
     Dosage: 4.5 MG, QD
     Route: 042
     Dates: start: 20190412
  6. CARIPUL [Suspect]
     Active Substance: EPOPROSTENOL
     Indication: PULMONARY ARTERIAL HYPERTENSION
     Dosage: 3.4 MG, QD
     Route: 042

REACTIONS (9)
  - Device malfunction [Unknown]
  - Pain in jaw [Unknown]
  - Dyspnoea exertional [Unknown]
  - Blood pressure increased [Unknown]
  - Hospitalisation [Unknown]
  - Device infusion issue [Unknown]
  - Bacteraemia [Recovered/Resolved]
  - Thrombosis in device [Recovered/Resolved]
  - Malaise [Unknown]

NARRATIVE: CASE EVENT DATE: 20190419
